FAERS Safety Report 5504365-9 (Version None)
Quarter: 2007Q4

REPORT INFORMATION
  Report Type: 
  Country: None (occurrence: None)
  Receive Date: 20071030
  Receipt Date: 20071019
  Transmission Date: 20080405
  Serious: Yes (Death)
  Sender: FDA-Public Use
  Company Number: GXKR2007GB09080

PATIENT
  Age: 92 Year
  Sex: Female
  Weight: 42.1 kg

DRUGS (6)
  1. FLUCLOXACILLIN (NGX)(FLUCLOXACILLIN) UNKNOWN [Suspect]
     Indication: CELLULITIS
     Dosage: 500 MG, QID, ORAL
     Route: 048
     Dates: start: 20070809, end: 20070819
  2. PHENOXYMETHYLPENICILLIN (= PENICILLIN V) (NGX) (PHENOXYMETHYLPENICILLI [Suspect]
     Indication: CELLULITIS
     Dosage: 500 MG, QID, ORAL
     Route: 048
     Dates: start: 20070809, end: 20070819
  3. CLOPIDOGREL [Concomitant]
  4. DIGOXIN [Concomitant]
  5. ACETAMINOPHEN [Concomitant]
  6. TEMAZEPAM [Concomitant]

REACTIONS (2)
  - AORTIC STENOSIS [None]
  - CLOSTRIDIAL INFECTION [None]
